FAERS Safety Report 24547987 (Version 1)
Quarter: 2024Q4

REPORT INFORMATION
  Report Type: Spontaneous
  Country: IT (occurrence: IT)
  Receive Date: 20241025
  Receipt Date: 20241025
  Transmission Date: 20250114
  Serious: Yes (Hospitalization, Other)
  Sender: AUROBINDO
  Company Number: IT-SANDOZ-SDZ2023IT024455

PATIENT
  Age: 62 Year
  Sex: Female
  Weight: 61 kg

DRUGS (3)
  1. IRINOTECAN [Suspect]
     Active Substance: IRINOTECAN
     Indication: Colorectal cancer metastatic
     Dosage: 296 MILLIGRAM, Q2W
     Route: 042
     Dates: start: 20230517
  2. FLUOROURACIL [Suspect]
     Active Substance: FLUOROURACIL
     Indication: Colorectal cancer metastatic
     Dosage: 3951 MILLIGRAM, Q2W
     Route: 042
     Dates: start: 20230517
  3. FLUOROURACIL [Suspect]
     Active Substance: FLUOROURACIL
     Dosage: 658 MILLIGRAM, Q2W
     Route: 042
     Dates: start: 20230517

REACTIONS (1)
  - Cholangitis [Recovered/Resolved]

NARRATIVE: CASE EVENT DATE: 20230901
